FAERS Safety Report 7294253-2 (Version None)
Quarter: 2011Q1

REPORT INFORMATION
  Report Type: 
  Country: None (occurrence: None)
  Receive Date: 20110215
  Receipt Date: 20110209
  Transmission Date: 20110831
  Serious: Yes (Other)
  Sender: FDA-Public Use
  Company Number: US-JNJCH-2011003701

PATIENT
  Age: 22 Year
  Sex: Female
  Weight: 54.4 kg

DRUGS (1)
  1. LISTERINE WHITENING PLUS RESTORING FLUORIDE RINSE [Suspect]
     Indication: DENTAL CARE
     Dosage: TEXT:ABOUT TWO TEASPOONFUL TWO TIMES PER DAY
     Route: 048

REACTIONS (3)
  - TOOTH DISORDER [None]
  - SURGERY [None]
  - ORAL PAIN [None]
